FAERS Safety Report 7420710-1 (Version None)
Quarter: 2011Q2

REPORT INFORMATION
  Report Type: 
  Country: None (occurrence: None)
  Receive Date: 20110418
  Receipt Date: 20101019
  Transmission Date: 20111010
  Serious: Yes (Hospitalization, Other)
  Sender: FDA-Public Use
  Company Number: US-BAYER-201035072NA

PATIENT
  Age: 35 Year
  Sex: Female
  Weight: 88.435 kg

DRUGS (18)
  1. YAZ [Suspect]
     Indication: CONTRACEPTION
     Dosage: UNK UNK, UNK
     Route: 048
     Dates: start: 20060901, end: 20090501
  2. OCELLA [Suspect]
     Indication: ACNE
  3. PROMETHAZINE [Concomitant]
     Indication: NAUSEA
     Dosage: 25 MG, QID
     Dates: start: 20090901, end: 20090901
  4. TUSS-IONEX [HYDROCODONE,PHENYLTOLOXAMINE] [Concomitant]
     Dosage: UNK
     Dates: start: 20090901, end: 20090901
  5. ETODOLAC [Concomitant]
     Dosage: 500 MG, TABLETS
     Dates: start: 20060701
  6. ERYTHROMYCIN [Concomitant]
     Dosage: UNK
     Route: 061
     Dates: start: 20060601, end: 20060601
  7. CHERATUSSIN AC [Concomitant]
     Indication: COUGH
     Dosage: UNK
     Dates: start: 20090901, end: 20090901
  8. SYNTHROID [Concomitant]
     Dosage: UNK
     Dates: start: 19960101
  9. LEXAPRO [Concomitant]
     Dosage: 10 MG, QD
     Dates: start: 20090101
  10. YASMIN [Suspect]
     Indication: ACNE
  11. SKELAXIN [Concomitant]
  12. TRAMADOL [Concomitant]
     Dosage: UNK
     Dates: start: 20060701, end: 20060701
  13. OCELLA [Suspect]
     Indication: CONTRACEPTION
     Dosage: UNK UNK, UNK
     Route: 048
     Dates: start: 20090501, end: 20091101
  14. LEVAQUIN [Concomitant]
     Dosage: 500 MG, QD
     Dates: start: 20090901, end: 20090901
  15. YASMIN [Suspect]
     Indication: CONTRACEPTION
     Dosage: UNK UNK, UNK
     Route: 048
     Dates: start: 20060701, end: 20060701
  16. YAZ [Suspect]
     Indication: ACNE
  17. LISINOPRIL [Concomitant]
     Dosage: 2.5 MG, UNK
     Dates: start: 20040101, end: 20080101
  18. LEXAPRO [Concomitant]
     Dosage: 10 MG, QD
     Dates: start: 20080101

REACTIONS (13)
  - ABDOMINAL PAIN [None]
  - CHOLECYSTITIS [None]
  - POSTOPERATIVE CARE [None]
  - MEDICAL DIET [None]
  - PAIN IN EXTREMITY [None]
  - GALLBLADDER DISORDER [None]
  - DYSPNOEA [None]
  - POST PROCEDURAL PULMONARY EMBOLISM [None]
  - QUALITY OF LIFE DECREASED [None]
  - PULMONARY EMBOLISM [None]
  - PROCEDURAL PAIN [None]
  - DEEP VEIN THROMBOSIS [None]
  - ANXIETY [None]
